FAERS Safety Report 12707728 (Version 1)
Quarter: 2016Q3

REPORT INFORMATION
  Report Type: Spontaneous
  Country: US (occurrence: US)
  Receive Date: 20160901
  Receipt Date: 20160901
  Transmission Date: 20161109
  Serious: No
  Sender: FDA-Public Use
  Company Number: US-BAYER-2016-170137

PATIENT
  Age: 2 Year
  Sex: Female
  Weight: 18.14 kg

DRUGS (2)
  1. MIRALAX [Suspect]
     Active Substance: POLYETHYLENE GLYCOL 3350
     Indication: CONSTIPATION
  2. MIRALAX [Suspect]
     Active Substance: POLYETHYLENE GLYCOL 3350
     Indication: GASTROINTESTINAL DISORDER
     Dosage: 1 TEASPOON, QD
     Route: 048
     Dates: start: 2014, end: 20160830

REACTIONS (2)
  - Product use issue [None]
  - Product taste abnormal [None]

NARRATIVE: CASE EVENT DATE: 2014
